FAERS Safety Report 19953423 (Version 2)
Quarter: 2021Q4

REPORT INFORMATION
  Report Type: Report from Study
  Country: AT (occurrence: AT)
  Receive Date: 20211014
  Receipt Date: 20211020
  Transmission Date: 20220303
  Serious: Yes (Death, Other)
  Sender: FDA-Public Use
  Company Number: AT-ROCHE-2929817

PATIENT
  Age: 56 Year
  Sex: Female
  Weight: 69 kg

DRUGS (15)
  1. ADO-TRASTUZUMAB EMTANSINE [Suspect]
     Active Substance: ADO-TRASTUZUMAB EMTANSINE
     Indication: Breast cancer metastatic
     Route: 042
     Dates: start: 20210816, end: 20210928
  2. TUCATINIB [Suspect]
     Active Substance: TUCATINIB
     Indication: Breast cancer metastatic
     Route: 048
     Dates: start: 20210816, end: 20210930
  3. EUTHYROX [Concomitant]
     Active Substance: LEVOTHYROXINE SODIUM
     Dates: start: 20210827
  4. PANTOPRAZOLE [Concomitant]
     Active Substance: PANTOPRAZOLE
     Dates: start: 202107
  5. CONCORDIN [Concomitant]
     Dates: start: 202101
  6. ARISTOCOR [Concomitant]
     Dates: start: 202101
  7. ELIQUIS [Concomitant]
     Active Substance: APIXABAN
  8. XGEVA [Concomitant]
     Active Substance: DENOSUMAB
     Dates: start: 202106, end: 20210928
  9. PASPERTIN [Concomitant]
     Dates: start: 202001
  10. NOVALGIN (METAMIZOLE SODIUM) [Concomitant]
     Active Substance: METAMIZOLE SODIUM
     Dates: start: 202001
  11. ZOFRAN [Concomitant]
     Active Substance: ONDANSETRON HYDROCHLORIDE
     Dates: start: 202001
  12. PANTOPRAZOLE SODIUM [Concomitant]
     Active Substance: PANTOPRAZOLE SODIUM
     Dates: start: 20210827
  13. GLANDOMED [Concomitant]
     Dates: start: 20210827
  14. KALIORAL (AUSTRIA) [Concomitant]
     Dates: start: 20210827
  15. ENTEROBENE [Concomitant]
     Dates: start: 20210911

REACTIONS (2)
  - Hepatic failure [Fatal]
  - Subileus [Not Recovered/Not Resolved]

NARRATIVE: CASE EVENT DATE: 20211001
